FAERS Safety Report 24166342 (Version 1)
Quarter: 2024Q3

REPORT INFORMATION
  Report Type: Spontaneous
  Country: IL (occurrence: IL)
  Receive Date: 20240802
  Receipt Date: 20240802
  Transmission Date: 20241017
  Serious: No
  Sender: ALKEM
  Company Number: IL-ALKEM LABORATORIES LIMITED-IL-ALKEM-2023-07489

PATIENT
  Sex: Female
  Weight: 100 kg

DRUGS (1)
  1. LAMOTRIGINE [Suspect]
     Active Substance: LAMOTRIGINE
     Indication: Epilepsy
     Dosage: 200 MILLIGRAM, QD (TOTAL DAILY DOSE) (MATERNAL DAILY EXPOSURE (2.00 MG/KG/DAY))
     Route: 065

REACTIONS (1)
  - Maternal exposure during breast feeding [Unknown]
